FAERS Safety Report 6207604-4 (Version None)
Quarter: 2009Q2

REPORT INFORMATION
  Report Type: 
  Country: None (occurrence: None)
  Receive Date: 20090528
  Receipt Date: 20090519
  Transmission Date: 20091009
  Serious: Yes (Other)
  Sender: FDA-Public Use
  Company Number: US-AMGEN-QUU347934

PATIENT
  Sex: Female

DRUGS (2)
  1. ENBREL [Suspect]
     Indication: RHEUMATOID ARTHRITIS
     Route: 058
     Dates: start: 20080901
  2. IMURAN [Concomitant]
     Route: 048
     Dates: start: 20090401

REACTIONS (5)
  - ARTHRALGIA [None]
  - BALANCE DISORDER [None]
  - CONTUSION [None]
  - FATIGUE [None]
  - SENSATION OF HEAVINESS [None]
